FAERS Safety Report 14402087 (Version 1)
Quarter: 2018Q1

REPORT INFORMATION
  Report Type: Spontaneous
  Country: US (occurrence: US)
  Receive Date: 20180117
  Receipt Date: 20180117
  Transmission Date: 20180509
  Serious: No
  Sender: FDA-Public Use
  Company Number: US-009507513-1712USA009275

PATIENT
  Sex: Female

DRUGS (1)
  1. NUVARING [Suspect]
     Active Substance: ETHINYL ESTRADIOL\ETONOGESTREL
     Dosage: 3 WEEKS/ONE WEEK FREE
     Route: 067
     Dates: start: 201706

REACTIONS (3)
  - No adverse event [Unknown]
  - Device breakage [Unknown]
  - Product use issue [Unknown]
